FAERS Safety Report 6370073-8 (Version None)
Quarter: 2009Q3

REPORT INFORMATION
  Report Type: 
  Country: None (occurrence: None)
  Receive Date: 20090923
  Receipt Date: 20070907
  Transmission Date: 20100115
  Serious: No
  Sender: FDA-Public Use
  Company Number: US-ASTRAZENECA-2006UW21274

PATIENT
  Age: 47 Year
  Sex: Male
  Weight: 92.5 kg

DRUGS (37)
  1. SEROQUEL [Suspect]
     Indication: NERVOUS SYSTEM DISORDER
     Route: 048
     Dates: start: 19970101, end: 20000101
  2. SEROQUEL [Suspect]
     Indication: HALLUCINATION, AUDITORY
     Route: 048
     Dates: start: 19970101, end: 20000101
  3. SEROQUEL [Suspect]
     Dosage: 25 -200 MG
     Route: 048
     Dates: start: 20000426
  4. SEROQUEL [Suspect]
     Dosage: 25 -200 MG
     Route: 048
     Dates: start: 20000426
  5. ABILIFY [Concomitant]
  6. ACCUPRIL [Concomitant]
     Route: 048
  7. ASPIRIN [Concomitant]
     Indication: ANTICOAGULANT THERAPY
     Route: 065
  8. AVANDIA [Concomitant]
     Route: 048
  9. CAVERJECT [Concomitant]
     Route: 065
  10. FLEXERIL [Concomitant]
     Route: 048
  11. GEODON [Concomitant]
     Route: 065
  12. GLUCOPHAGE [Concomitant]
     Route: 065
  13. HUMULIN R [Concomitant]
     Indication: TYPE 2 DIABETES MELLITUS
     Dosage: 25-50 MG, TWO TIMES A DAY
     Route: 065
  14. KLONOPIN [Concomitant]
     Route: 065
  15. LIPITOR [Concomitant]
     Route: 065
  16. LORCET-HD [Concomitant]
     Route: 065
  17. NORVASC [Concomitant]
     Route: 065
  18. RISPERDAL [Concomitant]
     Indication: PSYCHOTIC DISORDER
     Route: 065
  19. SOMA [Concomitant]
     Indication: BACK PAIN
     Route: 048
  20. SOMA [Concomitant]
     Indication: OSTEOARTHRITIS
     Route: 048
  21. SONATA [Concomitant]
     Route: 065
  22. TRICOR [Concomitant]
     Indication: HYPERCHOLESTEROLAEMIA
     Route: 065
  23. VIAGRA [Concomitant]
     Indication: ERECTILE DYSFUNCTION
     Route: 065
  24. WELLBUTRIN [Concomitant]
     Route: 065
  25. ZITHROMAX [Concomitant]
     Route: 065
  26. ZOLOFT [Concomitant]
     Indication: DEPRESSION
     Dosage: 20-50 MG
     Route: 065
  27. ZYRTEC [Concomitant]
     Route: 048
  28. AMITRIPTYLINE [Concomitant]
     Route: 065
  29. TRIMETHOPRIM [Concomitant]
     Route: 065
  30. DIAZEPAM [Concomitant]
     Indication: ANXIETY
     Route: 065
  31. DOXYCYCLINE HYCLATE [Concomitant]
     Route: 065
  32. DEXAMETHASONE [Concomitant]
     Route: 065
  33. GEMFIBROZIL [Concomitant]
     Route: 065
  34. LISINOPRIL [Concomitant]
     Indication: HYPERTENSION
     Route: 065
  35. NEOMYCIN SULFATE [Concomitant]
     Route: 065
  36. GENTAMICIN SULFATE [Concomitant]
     Route: 065
  37. HYDROCODONE BITARTRATE [Concomitant]
     Route: 065

REACTIONS (9)
  - AGGRESSION [None]
  - BACK PAIN [None]
  - BURSITIS [None]
  - DEPRESSION [None]
  - DIABETES MELLITUS [None]
  - JAW FRACTURE [None]
  - MUSCULOSKELETAL PAIN [None]
  - SWELLING FACE [None]
  - TENDONITIS [None]
